FAERS Safety Report 15768758 (Version 1)
Quarter: 2018Q4

REPORT INFORMATION
  Report Type: Spontaneous
  Country: DE (occurrence: DE)
  Receive Date: 20181228
  Receipt Date: 20181228
  Transmission Date: 20190205
  Serious: Yes (Hospitalization)
  Sender: FDA-Public Use
  Company Number: DE-ROCHE-2235134

PATIENT
  Age: 45 Year
  Sex: Female
  Weight: 56 kg

DRUGS (9)
  1. VIVEO [Concomitant]
     Indication: HEMIPARESIS
     Route: 048
     Dates: start: 20160510
  2. NIFURANTIN [Concomitant]
     Active Substance: NITROFURANTOIN
     Indication: URINARY TRACT INFECTION
     Route: 048
     Dates: start: 20150127
  3. SATIVEX [Concomitant]
     Active Substance: NABIXIMOLS
     Indication: MULTIPLE SCLEROSIS
     Route: 048
     Dates: start: 20121108, end: 20130102
  4. RITUXAN [Suspect]
     Active Substance: RITUXIMAB
     Indication: MULTIPLE SCLEROSIS
     Route: 042
  5. VENLAFAXIN [Concomitant]
     Active Substance: VENLAFAXINE HYDROCHLORIDE
     Indication: DEPRESSED MOOD
     Route: 048
     Dates: start: 20161227
  6. SATIVEX [Concomitant]
     Active Substance: NABIXIMOLS
     Indication: HEMIPARESIS
     Route: 048
     Dates: start: 20160510
  7. BERLTHYROX [Concomitant]
     Route: 048
     Dates: start: 20170403
  8. ZOLPIDEM [Concomitant]
     Active Substance: ZOLPIDEM\ZOLPIDEM TARTRATE
     Indication: MULTIPLE SCLEROSIS
     Dosage: IN THE EVENING
     Route: 048
     Dates: start: 20150924
  9. TOVIAZ [Concomitant]
     Active Substance: FESOTERODINE FUMARATE
     Indication: NEUROGENIC BLADDER
     Route: 048
     Dates: start: 20150127

REACTIONS (7)
  - Fine motor skill dysfunction [Recovered/Resolved]
  - Polyarthritis [Unknown]
  - Off label use [Unknown]
  - Postural tremor [Recovered/Resolved]
  - Intention tremor [Recovered/Resolved]
  - Intentional product use issue [Unknown]
  - Muscle spasticity [Recovered/Resolved]

NARRATIVE: CASE EVENT DATE: 20180528
